FAERS Safety Report 7094665-6 (Version None)
Quarter: 2010Q4

REPORT INFORMATION
  Report Type: 
  Country: None (occurrence: None)
  Receive Date: 20101110
  Receipt Date: 20101104
  Transmission Date: 20110411
  Serious: Yes (Other)
  Sender: FDA-Public Use
  Company Number: ZA-PFIZER INC-2010141142

PATIENT
  Sex: Female

DRUGS (2)
  1. PREGABALIN [Suspect]
     Indication: BACK PAIN
     Dosage: 75 MG, 1X/DAY
     Route: 048
  2. TRAMADOL [Concomitant]
     Route: 048

REACTIONS (3)
  - ACCIDENTAL OVERDOSE [None]
  - DRUG DEPENDENCE [None]
  - INTENTIONAL OVERDOSE [None]
